FAERS Safety Report 8431306-7 (Version None)
Quarter: 2012Q2

REPORT INFORMATION
  Report Type: 
  Country: None (occurrence: None)
  Receive Date: 20120613
  Receipt Date: 20120607
  Transmission Date: 20120825
  Serious: Yes (Hospitalization)
  Sender: FDA-Public Use
  Company Number: US-BIOGENIDEC-2011BI025071

PATIENT
  Age: 65 Year
  Sex: Female

DRUGS (4)
  1. AVONEX [Suspect]
     Route: 030
     Dates: start: 20110329, end: 20111028
  2. AVONEX [Suspect]
     Route: 030
     Dates: start: 20110329, end: 20111028
  3. AVONEX [Suspect]
     Route: 030
     Dates: end: 20120401
  4. AVONEX [Suspect]
     Indication: MULTIPLE SCLEROSIS
     Route: 030
     Dates: start: 20110329, end: 20111028

REACTIONS (6)
  - ARTHRALGIA [None]
  - RENAL CELL CARCINOMA [None]
  - ENDOMETRIAL CANCER [None]
  - MUSCULOSKELETAL STIFFNESS [None]
  - INFLUENZA LIKE ILLNESS [None]
  - TRIGEMINAL NEURALGIA [None]
